FAERS Safety Report 7210776-6 (Version None)
Quarter: 2011Q1

REPORT INFORMATION
  Report Type: 
  Country: None (occurrence: None)
  Receive Date: 20110105
  Receipt Date: 20101223
  Transmission Date: 20110831
  Serious: Yes (Other)
  Sender: FDA-Public Use
  Company Number: DE-JNJCH-2010028622

PATIENT
  Sex: Female
  Weight: 71 kg

DRUGS (1)
  1. ROGAINE [Suspect]
     Indication: PRODUCT USED FOR UNKNOWN INDICATION
     Dosage: TEXT:TWICE DAILY
     Route: 061
     Dates: start: 20100401, end: 20100801

REACTIONS (4)
  - APPLICATION SITE RASH [None]
  - LENTIGO [None]
  - APPLICATION SITE PRURITUS [None]
  - APPLICATION SITE ERYTHEMA [None]
